FAERS Safety Report 4482770-X (Version None)
Quarter: 2004Q3

REPORT INFORMATION
  Report Type: 
  Country: None (occurrence: None)
  Receive Date: 20040921
  Receipt Date: 20040524
  Transmission Date: 20050211
  Serious: Yes (Hospitalization)
  Sender: FDA-Public Use
  Company Number: 163-20785-04050588 (0)

PATIENT
  Age: 73 Year
  Sex: Male

DRUGS (10)
  1. THALOMID [Suspect]
     Indication: MULTIPLE MYELOMA
     Dosage: 200 MG, DAILY, ORAL
     Route: 048
     Dates: start: 20040504, end: 20040507
  2. BORTEZOMIB (BORTEZOMIB) (CAPSULES) [Suspect]
     Indication: MULTIPLE MYELOMA
     Dosage: 2 MG, DAILY, INTRAVENOUS
     Route: 042
     Dates: start: 20040501, end: 20040501
  3. BORTEZOMIB (BORTEZOMIB) (CAPSULES) [Suspect]
     Indication: MULTIPLE MYELOMA
     Dosage: 2 MG, DAILY, INTRAVENOUS
     Route: 042
     Dates: start: 20040504, end: 20040504
  4. BORTEZOMIB (BORTEZOMIB) (CAPSULES) [Suspect]
     Indication: MULTIPLE MYELOMA
     Dosage: 2 MG, DAILY, INTRAVENOUS
     Route: 042
     Dates: start: 20040508, end: 20040508
  5. BORTEZOMIB (BORTEZOMIB) (CAPSULES) [Suspect]
     Indication: MULTIPLE MYELOMA
     Dosage: 2 MG, DAILY, INTRAVENOUS
     Route: 042
     Dates: start: 20040511, end: 20040511
  6. DEXAMETHASONE [Suspect]
     Indication: MULTIPLE MYELOMA
     Dosage: 40 MG, DAILY, ORAL
     Route: 048
     Dates: start: 20040504, end: 20040507
  7. CISPLATIN [Suspect]
     Indication: MULTIPLE MYELOMA
     Dosage: 20 MG, DAILY, INTRAVENOUS
     Route: 042
     Dates: start: 20040504, end: 20040507
  8. ADRIAMYCIN PFS [Suspect]
     Indication: MULTIPLE MYELOMA
     Dosage: 20 MG, DAILY, INTRAVENOUS
     Route: 042
     Dates: start: 20040504, end: 20040507
  9. CYCLOPHOSPHAMIDE [Suspect]
     Indication: MULTIPLE MYELOMA
     Dosage: 800 MG, DAILY, INTRAVENOUS
     Route: 042
     Dates: start: 20040504, end: 20040507
  10. ETOPOSIDE [Suspect]
     Indication: MULTIPLE MYELOMA
     Dosage: 80 MG, DAILY, INTRAVENOUS
     Route: 042
     Dates: start: 20040504, end: 20040507

REACTIONS (1)
  - SYNCOPE [None]
